FAERS Safety Report 5531772-0 (Version None)
Quarter: 2007Q4

REPORT INFORMATION
  Report Type: 
  Country: None (occurrence: None)
  Receive Date: 20071128
  Receipt Date: 20071108
  Transmission Date: 20080405
  Serious: Yes (Other)
  Sender: FDA-Public Use
  Company Number: 2007US002783

PATIENT
  Age: 61 Year
  Sex: Female

DRUGS (1)
  1. PROGRAF [Suspect]
     Indication: LIVER TRANSPLANT
     Dosage: 5 MG, BID, ORAL ; 7 MG, UID/QD, ORAL
     Route: 048

REACTIONS (3)
  - DISEASE RECURRENCE [None]
  - DRUG LEVEL INCREASED [None]
  - HEPATITIS C [None]
